FAERS Safety Report 7519734-5 (Version None)
Quarter: 2011Q2

REPORT INFORMATION
  Report Type: 
  Country: None (occurrence: None)
  Receive Date: 20110602
  Receipt Date: 20110601
  Transmission Date: 20111010
  Serious: Yes (Life-Threatening, Hospitalization)
  Sender: FDA-Public Use
  Company Number: US-B.I. PHARMACEUTICALS,INC./RIDGEFIELD-2011-BP-14402BP

PATIENT
  Age: 87 Year
  Sex: Male

DRUGS (9)
  1. K+ SUPPLEMENT [Concomitant]
  2. METALAZONE [Concomitant]
  3. ALLOPURINOL [Concomitant]
  4. PRADAXA [Suspect]
     Indication: ATRIAL FIBRILLATION
     Dosage: 300 MG
     Route: 048
     Dates: start: 20101201, end: 20110501
  5. AMLODIPINE [Concomitant]
  6. LASIX [Concomitant]
  7. LISINOPRIL AND HYDROCHLOROTHIAZIDE [Concomitant]
  8. ATENOLOL [Concomitant]
  9. SIMVASTATIN [Concomitant]

REACTIONS (2)
  - SMALL INTESTINAL HAEMORRHAGE [None]
  - HAEMATOCRIT DECREASED [None]
